FAERS Safety Report 13701673 (Version 6)
Quarter: 2017Q4

REPORT INFORMATION
  Report Type: Spontaneous
  Country: KW (occurrence: KW)
  Receive Date: 20170629
  Receipt Date: 20171229
  Transmission Date: 20180320
  Serious: Yes (Death, Hospitalization, Other)
  Sender: FDA-Public Use
  Company Number: KW-PFIZER INC-2017282424

PATIENT
  Age: 51 Year
  Sex: Female

DRUGS (2)
  1. XELJANZ [Suspect]
     Active Substance: TOFACITINIB CITRATE
     Indication: RHEUMATOID ARTHRITIS
     Dosage: 5 MG, 2X/DAY
     Route: 048
     Dates: start: 20170628
  2. METHOTREXATE SODIUM. [Suspect]
     Active Substance: METHOTREXATE SODIUM
     Dosage: UNK

REACTIONS (8)
  - Multiple sclerosis [Unknown]
  - Death [Fatal]
  - JC virus test positive [Unknown]
  - Depression [Unknown]
  - Renal injury [Unknown]
  - Pyrexia [Unknown]
  - Progressive multifocal leukoencephalopathy [Unknown]
  - Infection [Unknown]

NARRATIVE: CASE EVENT DATE: 201706
